FAERS Safety Report 11626861 (Version 3)
Quarter: 2016Q1

REPORT INFORMATION
  Report Type: Report from Study
  Country: US (occurrence: US)
  Receive Date: 20151013
  Receipt Date: 20160303
  Transmission Date: 20160525
  Serious: Yes (Other)
  Sender: FDA-Public Use
  Company Number: US-MALLINCKRODT-T201501475

PATIENT
  Age: 33 Year
  Sex: Female

DRUGS (5)
  1. CELEXA [Concomitant]
     Active Substance: CITALOPRAM HYDROBROMIDE
  2. REPOSITORY CORTICOTROPIN INJECTION [Suspect]
     Active Substance: CORTICOTROPIN
     Dosage: 40 UNITS TWO TIMES A WEEK
     Route: 058
     Dates: start: 201503, end: 2015
  3. REPOSITORY CORTICOTROPIN INJECTION [Suspect]
     Active Substance: CORTICOTROPIN
     Dosage: 80 UNITS, 2 TIMES WEEKLY
     Route: 058
     Dates: start: 2015, end: 201601
  4. REPOSITORY CORTICOTROPIN INJECTION [Suspect]
     Active Substance: CORTICOTROPIN
     Indication: FOCAL SEGMENTAL GLOMERULOSCLEROSIS
     Dosage: 20 UNITS, 2X A WEEK
     Route: 058
     Dates: start: 20150215, end: 2015
  5. REPOSITORY CORTICOTROPIN INJECTION [Suspect]
     Active Substance: CORTICOTROPIN
     Dosage: 80 UNITS, 2 TIMES WEEKLY
     Route: 058
     Dates: start: 2015, end: 20150907

REACTIONS (11)
  - Insomnia [Not Recovered/Not Resolved]
  - Blood glucose increased [Unknown]
  - Focal segmental glomerulosclerosis [Not Recovered/Not Resolved]
  - Headache [Not Recovered/Not Resolved]
  - Gallbladder disorder [Unknown]
  - Hyperhidrosis [Unknown]
  - Erythema [Not Recovered/Not Resolved]
  - Mood swings [Unknown]
  - Agitation [Unknown]
  - Blood pressure fluctuation [Unknown]
  - Anxiety [Unknown]

NARRATIVE: CASE EVENT DATE: 20150215
